FAERS Safety Report 9994814 (Version 2)
Quarter: 2014Q2

REPORT INFORMATION
  Report Type: Spontaneous
  Country: US (occurrence: None)
  Receive Date: 20140306
  Receipt Date: 20140528
  Transmission Date: 20141212
  Serious: Yes (Other)
  Sender: FDA-Public Use
  Company Number: USW201402-000039

PATIENT
  Age: 65 Year
  Sex: Female
  Weight: 55.79 kg

DRUGS (9)
  1. APOKYN [Suspect]
     Indication: PARKINSON^S DISEASE
     Dates: start: 201310
  2. STALEVO (CARBIDOPA, LEVODOPA, ENTACAPONE) (CARBIDOPA, LEVODOPA, ENTACAPONE) [Concomitant]
  3. PRAMIPEXOLE [Concomitant]
  4. ARTANE (TRIHEXYPHENIDYL) [Concomitant]
  5. ZOLOFT (SERTRALINE) [Concomitant]
  6. ASPIRIN (ASPIRIN) [Concomitant]
  7. VITAMIN D3 (VITAMIN D3) [Concomitant]
  8. CALCIUM (CALCIIUM) [Concomitant]
  9. SIMVASTATIN (SIMVASTATIN) [Concomitant]

REACTIONS (2)
  - Loss of consciousness [None]
  - Road traffic accident [None]
